FAERS Safety Report 13551099 (Version 1)
Quarter: 2017Q2

REPORT INFORMATION
  Report Type: Report from Study
  Country: CA (occurrence: CA)
  Receive Date: 20170516
  Receipt Date: 20170516
  Transmission Date: 20170830
  Serious: Yes (Other)
  Sender: FDA-Public Use
  Company Number: CA-JNJFOC-20170508719

PATIENT
  Age: 68 Year
  Sex: Male
  Weight: 80 kg

DRUGS (1)
  1. REMICADE [Suspect]
     Active Substance: INFLIXIMAB
     Indication: CROHN^S DISEASE
     Route: 042
     Dates: start: 20150505

REACTIONS (3)
  - Dyspnoea [Unknown]
  - Lupus-like syndrome [Unknown]
  - Pancytopenia [Unknown]

NARRATIVE: CASE EVENT DATE: 20170427
